FAERS Safety Report 7331418-5 (Version None)
Quarter: 2011Q1

REPORT INFORMATION
  Report Type: 
  Country: None (occurrence: None)
  Receive Date: 20110304
  Receipt Date: 20110221
  Transmission Date: 20110831
  Serious: Yes (Hospitalization)
  Sender: FDA-Public Use
  Company Number: CA-JNJFOC-20071000498

PATIENT
  Sex: Male
  Weight: 104 kg

DRUGS (24)
  1. CNTO 1275 [Suspect]
     Dosage: WEEK 28
     Route: 058
  2. NOVOTRAZODON [Concomitant]
     Route: 048
  3. NASONEX AQUEOUS NASAL SPRAY [Concomitant]
     Route: 045
  4. CNTO 1275 [Suspect]
     Indication: PSORIASIS
     Dosage: WEEK 56
     Route: 058
  5. CNTO 1275 [Suspect]
     Dosage: WEEK 60
     Route: 058
  6. CRESTOR [Concomitant]
     Route: 048
  7. CNTO 1275 [Suspect]
     Dosage: WEEK 16
     Route: 058
  8. CNTO 1275 [Suspect]
     Dosage: WEEK 0
     Route: 058
  9. CNTO 1275 [Suspect]
     Dosage: WEEK 44
     Route: 058
  10. CNTO 1275 [Suspect]
     Dosage: WEEK 72
     Route: 058
  11. CNTO 1275 [Suspect]
     Dosage: WEEK 68
     Route: 058
  12. CNTO 1275 [Suspect]
     Dosage: WEEK 76
     Route: 058
  13. PROZAC [Concomitant]
     Route: 048
  14. ASPIRIN [Concomitant]
     Route: 048
  15. CNTO 1275 [Suspect]
     Dosage: WEEK 64
     Route: 058
  16. CNTO 1275 [Suspect]
     Dosage: WEEK 12
     Route: 058
  17. CNTO 1275 [Suspect]
     Dosage: WEEK 52
     Route: 058
  18. CNTO 1275 [Suspect]
     Dosage: WEEK 36
     Route: 058
  19. FLONASE [Concomitant]
     Route: 045
  20. CNTO 1275 [Suspect]
     Dosage: WEEK 40
     Route: 058
  21. SYSTANE [Concomitant]
     Route: 047
  22. ARTHROTEC [Concomitant]
     Route: 048
  23. CNTO 1275 [Suspect]
     Dosage: WEEK 4
     Route: 058
  24. CNTO 1275 [Suspect]
     Dosage: WEEK 48
     Route: 058

REACTIONS (3)
  - SINUS BRADYCARDIA [None]
  - DEAFNESS NEUROSENSORY [None]
  - PRESYNCOPE [None]
